FAERS Safety Report 14024246 (Version 1)
Quarter: 2017Q3

REPORT INFORMATION
  Report Type: Spontaneous
  Country: IR (occurrence: IR)
  Receive Date: 20170929
  Receipt Date: 20170929
  Transmission Date: 20171128
  Serious: Yes (Hospitalization)
  Sender: FDA-Public Use
  Company Number: IR-JNJFOC-20170928351

PATIENT
  Age: 27 Year
  Sex: Male

DRUGS (2)
  1. TRAMADOL HYDROCHLORIDE. [Suspect]
     Active Substance: TRAMADOL HYDROCHLORIDE
     Indication: INTERVERTEBRAL DISC DISORDER
     Route: 048
  2. TRAMADOL HYDROCHLORIDE. [Suspect]
     Active Substance: TRAMADOL HYDROCHLORIDE
     Indication: INTERVERTEBRAL DISC DISORDER
     Route: 048

REACTIONS (7)
  - Drug ineffective [Unknown]
  - Lethargy [Unknown]
  - Blister [Unknown]
  - Overdose [Unknown]
  - Confusional state [Unknown]
  - Toxicity to various agents [Unknown]
  - Tachycardia [Unknown]
